FAERS Safety Report 19984585 (Version 3)
Quarter: 2021Q4

REPORT INFORMATION
  Report Type: Report from Study
  Country: JP (occurrence: JP)
  Receive Date: 20211021
  Receipt Date: 20211110
  Transmission Date: 20220304
  Serious: Yes (Other)
  Sender: FDA-Public Use
  Company Number: JP-MLMSERVICE-20211008-3149314-1

PATIENT
  Age: 7 Decade
  Sex: Female

DRUGS (8)
  1. BEVACIZUMAB [Suspect]
     Active Substance: BEVACIZUMAB
     Indication: Colorectal cancer
     Dosage: 5 MG/KG, CYCLIC, EVERY 2 WEEKS
  2. IRINOTECAN HYDROCHLORIDE [Suspect]
     Active Substance: IRINOTECAN HYDROCHLORIDE
     Indication: Colorectal cancer
     Dosage: 165 MG/M2 ON DAY 1
  3. OXALIPLATIN [Suspect]
     Active Substance: OXALIPLATIN
     Indication: Colorectal cancer
     Dosage: 85 MG/M2 ON DAY 1
  4. OXALIPLATIN [Suspect]
     Active Substance: OXALIPLATIN
     Dosage: 8 CYCLES
  5. LEVOLEUCOVORIN CALCIUM [Suspect]
     Active Substance: LEVOLEUCOVORIN CALCIUM
     Indication: Colorectal cancer
     Dosage: 200 MG/M2 ON DAY 1, EVERY 2 WEEKS
  6. LEVOLEUCOVORIN CALCIUM [Suspect]
     Active Substance: LEVOLEUCOVORIN CALCIUM
     Dosage: 8 CYCLES
  7. FLUOROURACIL [Suspect]
     Active Substance: FLUOROURACIL
     Indication: Colorectal cancer
     Dosage: 3,200 MG/M2 FOR 46 HOURS FROM DAY 1
  8. FLUOROURACIL [Suspect]
     Active Substance: FLUOROURACIL
     Dosage: 8 CYCLES

REACTIONS (1)
  - Hypertriglyceridaemia [Unknown]
